FAERS Safety Report 5327231-0 (Version None)
Quarter: 2007Q2

REPORT INFORMATION
  Report Type: 
  Country: None (occurrence: None)
  Receive Date: 20070514
  Receipt Date: 20070514
  Transmission Date: 20071010
  Serious: Yes (Other)
  Sender: FDA-Public Use
  Company Number: None

PATIENT
  Age: 57 Year
  Sex: Female
  Weight: 81.6475 kg

DRUGS (1)
  1. ZICAM [Suspect]
     Indication: SINUS CONGESTION
     Dosage: ONE SPRAY EACH NOSTRIL 1 TIME DAILY NASAL
     Route: 045
     Dates: start: 20060212, end: 20060215

REACTIONS (1)
  - ANOSMIA [None]
